FAERS Safety Report 4318513-X (Version None)
Quarter: 2004Q1

REPORT INFORMATION
  Report Type: 
  Country: None (occurrence: None)
  Receive Date: 20040318
  Receipt Date: 20031216
  Transmission Date: 20041129
  Serious: Yes (Other)
  Sender: FDA-Public Use
  Company Number: 200320523US

PATIENT
  Sex: Female
  Weight: 67.3 kg

DRUGS (2)
  1. NASACORT AQ [Suspect]
     Indication: COUGH
     Dosage: DOSE: 1 SPRAY EACH NOSTRIL
     Route: 045
     Dates: start: 20030912, end: 20030916
  2. ACTONEL [Concomitant]
     Indication: OSTEOPENIA
     Dosage: DOSE: UNK
     Dates: start: 20020101

REACTIONS (8)
  - BONE DISORDER [None]
  - GINGIVAL DISORDER [None]
  - GINGIVAL PAIN [None]
  - GINGIVAL SWELLING [None]
  - GINGIVITIS [None]
  - IMPAIRED HEALING [None]
  - ORAL PAIN [None]
  - OSTEOPENIA [None]
